FAERS Safety Report 24033267 (Version 1)
Quarter: 2024Q3

REPORT INFORMATION
  Report Type: Spontaneous
  Country: NO (occurrence: NO)
  Receive Date: 20240701
  Receipt Date: 20240701
  Transmission Date: 20241017
  Serious: Yes (Hospitalization)
  Sender: TEVA
  Company Number: None

PATIENT
  Age: 26 Year
  Sex: Female

DRUGS (13)
  1. CLONIDINE [Interacting]
     Active Substance: CLONIDINE
     Indication: Product used for unknown indication
     Dosage: 30 MCG/ML, 1.3 MCG/KG/HOUR, CLONIDINE TEVA
     Route: 048
     Dates: start: 20240524, end: 20240526
  2. ERYTHROCIN LACTOBIONATE [Interacting]
     Active Substance: ERYTHROMYCIN LACTOBIONATE
     Indication: Product used for unknown indication
     Dosage: 200 MG X 1 (2 DOSES TOTAL)
     Route: 042
     Dates: start: 20240524, end: 20240524
  3. ACETAMINOPHEN [Concomitant]
     Active Substance: ACETAMINOPHEN
     Indication: Product used for unknown indication
     Route: 065
  4. Noradrenalin Sintetica [Concomitant]
     Indication: Product used for unknown indication
     Route: 065
  5. ENOXAPARIN [Concomitant]
     Active Substance: ENOXAPARIN
     Indication: Prophylaxis
     Dosage: 20 MG X 1
     Route: 065
  6. PANTOPRAZOLE SODIUM [Concomitant]
     Active Substance: PANTOPRAZOLE SODIUM
     Indication: Product used for unknown indication
     Dosage: 40 MG I.V. X 2
     Route: 065
  7. BACTRIM [Interacting]
     Active Substance: SULFAMETHOXAZOLE\TRIMETHOPRIM
     Indication: Infection
     Dosage: 800MG/160 MG X 2, CONCENTRATE FOR INFUSION SOLUTION, SOLUTION
     Route: 042
     Dates: start: 20240523, end: 20240526
  8. VANCOMYCIN HYDROCHLORIDE [Concomitant]
     Active Substance: VANCOMYCIN HYDROCHLORIDE
     Indication: Infection
     Dosage: 125 MG X 4 IN TUBE
     Route: 065
  9. ANAFRANIL [Interacting]
     Active Substance: CLOMIPRAMINE HYDROCHLORIDE
     Indication: Anxiety
     Dosage: 100 MG X 2
     Route: 048
  10. METRONIDAZOLE [Interacting]
     Active Substance: METRONIDAZOLE
     Indication: Infection
     Dosage: METRONIDAZOLE BAXTER VIAFLO
     Route: 042
     Dates: start: 20240521, end: 20240526
  11. ISOFLURANE [Interacting]
     Active Substance: ISOFLURANE
     Indication: Sedation
     Dosage: END-TIDAL CONCENTRATION IN %: 1.25-1.5 IN THE LAST HOUR BEFORE THE EVENT, INHALATION VAPOR, LIQUID
     Route: 055
     Dates: start: 20240525, end: 20240526
  12. METOCLOPRAMIDE HYDROCHLORIDE [Interacting]
     Active Substance: METOCLOPRAMIDE HYDROCHLORIDE
     Indication: Product used for unknown indication
     Dosage: INTRAMUSCULAR USE, INTRAVENOUS USE
     Route: 065
     Dates: start: 20240525, end: 20240526
  13. SEROQUEL [Interacting]
     Active Substance: QUETIAPINE FUMARATE
     Indication: Product used for unknown indication
     Dosage: 300 MG IN THE MORNING AND 400 MG IN THE EVENING
     Route: 048

REACTIONS (1)
  - Torsade de pointes [Unknown]

NARRATIVE: CASE EVENT DATE: 20240526
